FAERS Safety Report 5703829-2 (Version None)
Quarter: 2008Q2

REPORT INFORMATION
  Report Type: 
  Country: None (occurrence: None)
  Receive Date: 20080414
  Receipt Date: 20080404
  Transmission Date: 20081010
  Serious: Yes (Death)
  Sender: FDA-Public Use
  Company Number: ZA-BAYER-200715386GDS

PATIENT
  Age: 66 Year
  Sex: Female

DRUGS (5)
  1. AVELON [Suspect]
     Indication: UPPER RESPIRATORY TRACT INFECTION
     Dosage: TOTAL DAILY DOSE: 400 MG
     Route: 048
     Dates: start: 20070907, end: 20070907
  2. LORIEN [Concomitant]
     Indication: DEPRESSION
     Route: 065
  3. SERETIDE [Concomitant]
     Indication: ASTHMA
     Route: 065
  4. ROHYPNOL [Concomitant]
     Indication: SLEEP DISORDER
     Route: 065
  5. BERIGLOBIN [Concomitant]
     Indication: INFECTIOUS MONONUCLEOSIS
     Route: 030
     Dates: end: 20070907

REACTIONS (2)
  - ANAPHYLACTIC REACTION [None]
  - MYOCARDIAL INFARCTION [None]
